FAERS Safety Report 5296864-2 (Version None)
Quarter: 2007Q2

REPORT INFORMATION
  Report Type: 
  Country: None (occurrence: None)
  Receive Date: 20070413
  Receipt Date: 20070404
  Transmission Date: 20071010
  Serious: Yes (Other)
  Sender: FDA-Public Use
  Company Number: US-PFIZER INC-2007027761

PATIENT
  Age: 40 Year
  Sex: Female

DRUGS (4)
  1. CHANTIX [Suspect]
     Indication: SMOKING CESSATION THERAPY
  2. UNIRETIC [Interacting]
     Indication: HYPERTENSION
  3. LEXAPRO [Concomitant]
  4. TOPROL-XL [Concomitant]

REACTIONS (5)
  - ANGIOEDEMA [None]
  - DRUG INTERACTION [None]
  - ERYTHEMA [None]
  - PARAESTHESIA [None]
  - THROAT TIGHTNESS [None]
